FAERS Safety Report 8242851-1 (Version None)
Quarter: 2012Q1

REPORT INFORMATION
  Report Type: 
  Country: None (occurrence: None)
  Receive Date: 20120314
  Receipt Date: 20100715
  Transmission Date: 20120608
  Serious: Yes (Life-Threatening, Other)
  Sender: FDA-Public Use
  Company Number: PHHY2010US41601

PATIENT
  Age: 75 Year
  Sex: Male

DRUGS (11)
  1. ACETAMINOPHEN [Concomitant]
  2. RANITIDINE HYDROCHLORIDE [Concomitant]
  3. SIMVASTATIN [Concomitant]
  4. FANAPT [Suspect]
     Indication: SCHIZOPHRENIA
     Dosage: 1 MG, BID, ORAL
     Route: 048
     Dates: start: 20100423, end: 20100424
  5. PLAVIX [Concomitant]
  6. LASIX [Concomitant]
  7. EXFORGE (VALSARTAN/AMLODIPINE BESILATE) (AMLODIPINE BESILATE, VALSARTA [Concomitant]
  8. ARICEPT (DONEPEZIL HYROCHLORIDE) [Concomitant]
  9. HYDROCHLOROTHIAZIDE [Concomitant]
  10. ASPIRIN [Concomitant]
  11. INSULIN SQ (INSULIN) [Concomitant]

REACTIONS (6)
  - CEREBROVASCULAR ACCIDENT [None]
  - SOMNOLENCE [None]
  - DISORIENTATION [None]
  - GAIT DISTURBANCE [None]
  - DYSARTHRIA [None]
  - DELIRIUM [None]
